FAERS Safety Report 8775836 (Version 1)
Quarter: 2012Q4

REPORT INFORMATION
  Report Type: 
  Country: US (occurrence: US)
  Receive Date: 20120910
  Receipt Date: 20120910
  Transmission Date: 20130627
  Serious: No
  Sender: FDA-Public Use
  Company Number: US-ASTRAZENECA-2012SE60428

PATIENT
  Age: 68 Year
  Sex: Female
  Weight: 57.6 kg

DRUGS (11)
  1. CRESTOR [Suspect]
     Indication: BLOOD CHOLESTEROL INCREASED
     Route: 048
     Dates: start: 2011, end: 201201
  2. MAGNESIUM [Interacting]
     Route: 048
  3. SEREVENT [Concomitant]
     Indication: ASTHMA
  4. FLOVENT [Concomitant]
     Indication: ASTHMA
  5. ACIPHEX [Concomitant]
     Indication: GASTROOESOPHAGEAL REFLUX DISEASE
  6. FISH OIL [Concomitant]
  7. FLAX SEED OIL [Concomitant]
  8. CALTRATE [Concomitant]
  9. VITAMIN D [Concomitant]
  10. HCTZ [Concomitant]
  11. NASONEX [Concomitant]

REACTIONS (3)
  - Diarrhoea [Recovered/Resolved]
  - Influenza like illness [Recovered/Resolved]
  - Drug interaction [Unknown]
